FAERS Safety Report 17665583 (Version 1)
Quarter: 2020Q3

REPORT INFORMATION
  Report Type: Report from Study
  Country: BR (occurrence: BR)
  Receive Date: 20200414
  Receipt Date: 20200414
  Transmission Date: 20201105
  Serious: Yes (Other)
  Sender: FDA-Public Use
  Company Number: PHHY2018BR049874

PATIENT
  Age: 52 Year
  Sex: Female
  Weight: 62 kg

DRUGS (5)
  1. XOLAIR [Suspect]
     Active Substance: OMALIZUMAB
     Indication: URTICARIA
     Dosage: UNK
     Route: 058
     Dates: start: 20191010
  2. CETIRIZINE [Suspect]
     Active Substance: CETIRIZINE HYDROCHLORIDE
     Indication: PRODUCT USED FOR UNKNOWN INDICATION
     Dosage: UNK
     Route: 065
  3. TIBOLONE [Concomitant]
     Active Substance: TIBOLONE
     Indication: HORMONE REPLACEMENT THERAPY
     Dosage: 1 DF, QD
     Route: 048
     Dates: start: 2013
  4. XOLAIR [Suspect]
     Active Substance: OMALIZUMAB
     Dosage: UNK
     Route: 065
     Dates: start: 20200217
  5. XOLAIR [Suspect]
     Active Substance: OMALIZUMAB
     Indication: URTICARIA CHRONIC
     Dosage: 300 MG (2 AMPOULES), EVERY 4 WEEKS
     Route: 058
     Dates: start: 20180215

REACTIONS (19)
  - Pain [Unknown]
  - Rhinitis [Not Recovered/Not Resolved]
  - Skin discolouration [Recovering/Resolving]
  - Rhinorrhoea [Recovered/Resolved]
  - Concomitant disease aggravated [Recovered/Resolved]
  - Secretion discharge [Recovered/Resolved]
  - Headache [Recovered/Resolved]
  - Erythema [Not Recovered/Not Resolved]
  - Drug ineffective [Recovering/Resolving]
  - Illness [Unknown]
  - Photosensitivity reaction [Unknown]
  - Sinusitis [Recovered/Resolved]
  - Influenza [Unknown]
  - Pruritus [Recovering/Resolving]
  - Sputum discoloured [Recovered/Resolved]
  - Skin plaque [Not Recovered/Not Resolved]
  - Urticaria [Recovering/Resolving]
  - Productive cough [Recovered/Resolved]
  - Head discomfort [Recovered/Resolved]

NARRATIVE: CASE EVENT DATE: 20180215
